FAERS Safety Report 17800536 (Version 1)
Quarter: 2020Q2

REPORT INFORMATION
  Report Type: Spontaneous
  Country: None (occurrence: US)
  Receive Date: 20200518
  Receipt Date: 20200518
  Transmission Date: 20200714
  Serious: No
  Sender: FDA-Public Use
  Company Number: US-AKRON, INC.-2083912

PATIENT
  Sex: Female

DRUGS (1)
  1. APRACLONIDINE OPHTHALMIC [Suspect]
     Active Substance: APRACLONIDINE HYDROCHLORIDE

REACTIONS (1)
  - Eye burns [Unknown]
